FAERS Safety Report 7284052-X (Version None)
Quarter: 2011Q1

REPORT INFORMATION
  Report Type: 
  Country: None (occurrence: None)
  Receive Date: 20110209
  Receipt Date: 20101228
  Transmission Date: 20110831
  Serious: Yes (Death, Other)
  Sender: FDA-Public Use
  Company Number: US-BAXTER-2010BH003676

PATIENT
  Age: 68 Year
  Sex: Female

DRUGS (2)
  1. HEPARIN SODIUM INJECTION [Suspect]
     Indication: CARDIAC PACEMAKER REVISION
     Route: 042
     Dates: start: 20080124, end: 20080124
  2. HEPARIN SODIUM INJECTION [Suspect]
     Route: 065
     Dates: start: 20080201, end: 20080215

REACTIONS (10)
  - HYPERTENSIVE CARDIOMYOPATHY [None]
  - CHILLS [None]
  - ABDOMINAL PAIN [None]
  - CARDIAC FAILURE CONGESTIVE [None]
  - RESPIRATORY FAILURE [None]
  - PRURITUS [None]
  - BLOOD PRESSURE DECREASED [None]
  - VOMITING [None]
  - PYREXIA [None]
  - NAUSEA [None]
